FAERS Safety Report 14539933 (Version 1)
Quarter: 2018Q1

REPORT INFORMATION
  Report Type: Spontaneous
  Country: US (occurrence: US)
  Receive Date: 20180216
  Receipt Date: 20180216
  Transmission Date: 20180509
  Serious: No
  Sender: FDA-Public Use
  Company Number: US-PFIZER INC-2018059019

PATIENT
  Age: 61 Year
  Sex: Female
  Weight: 58.5 kg

DRUGS (2)
  1. LYRICA [Suspect]
     Active Substance: PREGABALIN
     Indication: FIBROMYALGIA
  2. LYRICA [Suspect]
     Active Substance: PREGABALIN
     Indication: NEURALGIA
     Dosage: 75 MG, TWICE DAILY
     Dates: start: 201710, end: 201711

REACTIONS (8)
  - Weight decreased [Unknown]
  - Nipple exudate bloody [Recovered/Resolved with Sequelae]
  - Feeling hot [Recovered/Resolved]
  - Pruritus [Not Recovered/Not Resolved]
  - Nipple pain [Not Recovered/Not Resolved]
  - Breast swelling [Recovered/Resolved]
  - Breast mass [Unknown]
  - Breast discharge [Recovered/Resolved with Sequelae]

NARRATIVE: CASE EVENT DATE: 2017
